FAERS Safety Report 7729588-X (Version None)
Quarter: 2011Q3

REPORT INFORMATION
  Report Type: 
  Country: None (occurrence: None)
  Receive Date: 20110906
  Receipt Date: 20110826
  Transmission Date: 20111222
  Serious: Yes (Other)
  Sender: FDA-Public Use
  Company Number: US-BAYER-201041722NA

PATIENT
  Age: 22 Year
  Sex: Female
  Weight: 58.957 kg

DRUGS (6)
  1. YASMIN [Suspect]
     Indication: OVARIAN CYST
     Dosage: UNK UNK, UNK
     Route: 048
     Dates: start: 20041101, end: 20080701
  2. AMOXICILLIN [Concomitant]
     Dosage: 500 MG, UNK
  3. FLUCONAZOLE [Concomitant]
     Dosage: 150 MG, UNK
  4. LORATADINE [Concomitant]
     Dosage: 10 MG, UNK
  5. PROMETHAZINE [Concomitant]
     Dosage: 25 MG, UNK
  6. DROSPIRENONE AND ETHINYL ESTRADIOL [Suspect]
     Indication: OVARIAN CYST
     Dosage: UNK UNK, UNK
     Route: 065
     Dates: start: 20080701, end: 20091001

REACTIONS (6)
  - GALLBLADDER DISORDER [None]
  - VOMITING [None]
  - ABDOMINAL PAIN [None]
  - DIARRHOEA [None]
  - CHOLECYSTITIS CHRONIC [None]
  - NAUSEA [None]
